FAERS Safety Report 9777534 (Version 1)
Quarter: 2013Q4

REPORT INFORMATION
  Report Type: Spontaneous
  Country: US (occurrence: US)
  Receive Date: 20131222
  Receipt Date: 20131222
  Transmission Date: 20140711
  Serious: Yes (Other)
  Sender: FDA-Public Use
  Company Number: PHEH2013US026080

PATIENT
  Sex: Female

DRUGS (3)
  1. EXELON PATCH [Suspect]
     Dosage: UNK UKN, UNK
     Route: 062
  2. FLEXERIL [Suspect]
     Dosage: UNK UKN, UNK
  3. OXYCONTIN [Suspect]
     Dosage: UNK UKN, UNK

REACTIONS (1)
  - Coma [Unknown]
